FAERS Safety Report 22267286 (Version 1)
Quarter: 2023Q2

REPORT INFORMATION
  Report Type: Spontaneous
  Country: US (occurrence: US)
  Receive Date: 20230428
  Receipt Date: 20230428
  Transmission Date: 20230722
  Serious: No
  Sender: FDA-Public Use
  Company Number: US-PFIZER INC-202300170371

PATIENT
  Age: 71 Year
  Sex: Female
  Weight: 98.88 kg

DRUGS (2)
  1. IBRANCE [Suspect]
     Active Substance: PALBOCICLIB
     Indication: Breast cancer
     Dosage: 125 MG, CYCLIC (125MG FOR 21 DAYS ON AND 7 DAYS OFF)
     Dates: end: 20230410
  2. FULVESTRANT [Concomitant]
     Active Substance: FULVESTRANT
     Dosage: MONTHLY (STOPPED FOR THE TIME BEING, BUT WILL BE USED IN CONJUNCTION WITH THE NEW MEDICATION)

REACTIONS (1)
  - Neoplasm progression [Unknown]
